FAERS Safety Report 7720821-7 (Version None)
Quarter: 2011Q3

REPORT INFORMATION
  Report Type: 
  Country: None (occurrence: None)
  Receive Date: 20110831
  Receipt Date: 20110822
  Transmission Date: 20111222
  Serious: Yes (Hospitalization, Other)
  Sender: FDA-Public Use
  Company Number: JP-JNJFOC-20110810135

PATIENT
  Age: 75 Year
  Sex: Female

DRUGS (3)
  1. FENTANYL [Suspect]
     Route: 062
     Dates: start: 20110801
  2. MORPHINE [Suspect]
     Indication: PRODUCT USED FOR UNKNOWN INDICATION
     Route: 048
  3. FENTANYL [Suspect]
     Indication: CANCER PAIN
     Route: 062
     Dates: start: 20110101

REACTIONS (3)
  - SOMNOLENCE [None]
  - PSEUDOLOGIA [None]
  - HOSPITALISATION [None]
